FAERS Safety Report 4950664-9 (Version None)
Quarter: 2006Q1

REPORT INFORMATION
  Report Type: 
  Country: None (occurrence: None)
  Receive Date: 20060321
  Receipt Date: 20060321
  Transmission Date: 20060701
  Serious: Yes (Death)
  Sender: FDA-Public Use
  Company Number: None

PATIENT
  Age: 86 Year
  Sex: Male

DRUGS (1)
  1. HEPARIN [Suspect]
     Indication: PERIPHERAL VASCULAR DISORDER
     Dosage: CONTINUOUS INFUSION
     Dates: start: 20040427, end: 20040504

REACTIONS (3)
  - HEPARIN-INDUCED THROMBOCYTOPENIA [None]
  - LEG AMPUTATION [None]
  - THROMBOSIS [None]
